FAERS Safety Report 6346453-3 (Version None)
Quarter: 2009Q3

REPORT INFORMATION
  Report Type: 
  Country: None (occurrence: None)
  Receive Date: 20090821
  Receipt Date: 20090821
  Transmission Date: 20100115
  Serious: No
  Sender: FDA-Public Use
  Company Number: 8048125

PATIENT
  Sex: Female
  Weight: 54.5 kg

DRUGS (2)
  1. CIMZIA [Suspect]
     Indication: CROHN'S DISEASE
     Dosage: 400 MG 1/2W SC
     Route: 058
     Dates: start: 20090608
  2. MULTI-VITAMIN [Concomitant]

REACTIONS (2)
  - INJECTION SITE IRRITATION [None]
  - TOOTHACHE [None]
